FAERS Safety Report 9265336 (Version 50)
Quarter: 2017Q4

REPORT INFORMATION
  Report Type: Report from Study
  Country: CA (occurrence: CA)
  Receive Date: 20130501
  Receipt Date: 20171221
  Transmission Date: 20180321
  Serious: Yes (Other)
  Sender: FDA-Public Use
  Company Number: CA-ROCHE-1167534

PATIENT
  Age: 72 Year
  Sex: Female
  Weight: 76 kg

DRUGS (14)
  1. ACTEMRA [Suspect]
     Active Substance: TOCILIZUMAB
     Route: 042
     Dates: start: 20170809
  2. METHOTREXATE. [Suspect]
     Active Substance: METHOTREXATE
     Dosage: DOSE DECREASED TO 50MG FROM 60MG
     Route: 065
  3. ACTEMRA [Suspect]
     Active Substance: TOCILIZUMAB
     Route: 042
     Dates: start: 20150128
  4. ATENOLOL. [Concomitant]
     Active Substance: ATENOLOL
  5. ACTEMRA [Suspect]
     Active Substance: TOCILIZUMAB
     Route: 042
     Dates: start: 20160209
  6. ACTEMRA [Suspect]
     Active Substance: TOCILIZUMAB
     Route: 042
  7. LEUCOVORIN. [Concomitant]
     Active Substance: LEUCOVORIN
  8. ACTEMRA [Suspect]
     Active Substance: TOCILIZUMAB
     Route: 042
     Dates: start: 20140226
  9. ACTEMRA [Suspect]
     Active Substance: TOCILIZUMAB
     Indication: RHEUMATOID ARTHRITIS
     Route: 042
     Dates: start: 20120917
  10. ACTEMRA [Suspect]
     Active Substance: TOCILIZUMAB
     Route: 042
     Dates: start: 20141230
  11. CELEBREX [Concomitant]
     Active Substance: CELECOXIB
  12. ACTEMRA [Suspect]
     Active Substance: TOCILIZUMAB
     Route: 042
     Dates: start: 20150720
  13. OMEGASTATIN [Concomitant]
  14. METHOTREXATE. [Suspect]
     Active Substance: METHOTREXATE
     Indication: PRODUCT USED FOR UNKNOWN INDICATION
     Dosage: UNKNOWN DOSE AND FREQUENCY
     Route: 065

REACTIONS (43)
  - Ankle fracture [Unknown]
  - Arthralgia [Not Recovered/Not Resolved]
  - Asthenopia [Unknown]
  - Tooth fracture [Unknown]
  - Oxygen saturation decreased [Unknown]
  - Neuralgia [Recovering/Resolving]
  - Urinary retention [Unknown]
  - Vision blurred [Not Recovered/Not Resolved]
  - Gastrointestinal disorder [Unknown]
  - Weight decreased [Unknown]
  - Malaise [Unknown]
  - Dental restoration failure [Unknown]
  - Herpes zoster [Recovering/Resolving]
  - Device related infection [Recovered/Resolved]
  - Pain in jaw [Unknown]
  - Alopecia [Not Recovered/Not Resolved]
  - Blood pressure increased [Unknown]
  - Oxygen saturation decreased [Unknown]
  - Joint swelling [Unknown]
  - Heart rate decreased [Unknown]
  - Hypophagia [Unknown]
  - Infusion related reaction [Unknown]
  - Productive cough [Not Recovered/Not Resolved]
  - Complication associated with device [Unknown]
  - Ill-defined disorder [Unknown]
  - Urinary tract infection [Unknown]
  - Rheumatoid arthritis [Not Recovered/Not Resolved]
  - Nasopharyngitis [Recovering/Resolving]
  - Blood pressure increased [Unknown]
  - Cough [Unknown]
  - Red blood cell count decreased [Unknown]
  - Therapeutic response shortened [Unknown]
  - Rhinorrhoea [Unknown]
  - Nasopharyngitis [Not Recovered/Not Resolved]
  - Rhinorrhoea [Not Recovered/Not Resolved]
  - Cataract operation [Recovered/Resolved]
  - Weight increased [Recovering/Resolving]
  - Lower respiratory tract infection [Unknown]
  - Gingival pain [Not Recovered/Not Resolved]
  - Blood pressure fluctuation [Unknown]
  - Bronchitis [Recovering/Resolving]
  - Abdominal pain [Not Recovered/Not Resolved]
  - Gingival pain [Unknown]

NARRATIVE: CASE EVENT DATE: 2013
